FAERS Safety Report 4503373-4 (Version None)
Quarter: 2004Q4

REPORT INFORMATION
  Report Type: 
  Country: None (occurrence: None)
  Receive Date: 20041117
  Receipt Date: 20040913
  Transmission Date: 20050328
  Serious: Yes (Hospitalization)
  Sender: FDA-Public Use
  Company Number: US-GLAXOSMITHKLINE-A0525740A

PATIENT
  Age: 16 Year
  Sex: Female
  Weight: 74.1 kg

DRUGS (2)
  1. WELLBUTRIN XL [Suspect]
     Indication: DRUG USE FOR UNKNOWN INDICATION
     Route: 048
     Dates: start: 20031106, end: 20040810
  2. ABILIFY [Concomitant]
     Dosage: 15MG PER DAY

REACTIONS (4)
  - AMNESIA [None]
  - GRAND MAL CONVULSION [None]
  - INCONTINENCE [None]
  - TONGUE BITING [None]
